FAERS Safety Report 9097748 (Version 10)
Quarter: 2014Q2

REPORT INFORMATION
  Report Type: Report from Study
  Country: DE (occurrence: DE)
  Receive Date: 20130212
  Receipt Date: 20140507
  Transmission Date: 20141212
  Serious: Yes (Hospitalization, Other)
  Sender: FDA-Public Use
  Company Number: DE-OTSUKA-EU-2012-10083

PATIENT
  Sex: Female
  Weight: 54 kg

DRUGS (200)
  1. SAMSCA [Suspect]
     Indication: INAPPROPRIATE ANTIDIURETIC HORMONE SECRETION
     Dosage: 15 MG MILLIGRAM(S), DAILY DOSE
     Route: 048
     Dates: start: 20111221, end: 20111221
  2. SAMSCA [Suspect]
     Dosage: 15 MG MILLIGRAM(S), DAILY DOSE
     Route: 048
     Dates: start: 20120109, end: 20120109
  3. SAMSCA [Suspect]
     Dosage: 15 MG MILLIGRAM(S), DAILY DOSE
     Route: 048
     Dates: start: 20120117, end: 20120117
  4. SAMSCA [Suspect]
     Dosage: 15 MG MILLIGRAM(S), DAILY DOSE
     Route: 048
     Dates: start: 20120202, end: 20120202
  5. SAMSCA [Suspect]
     Dosage: 15 MG MILLIGRAM(S), DAILY DOSE
     Route: 048
     Dates: start: 20120222, end: 20120222
  6. SAMSCA [Suspect]
     Dosage: 15 MG MILLIGRAM(S), DAILY DOSE
     Route: 048
     Dates: start: 20120225, end: 20120225
  7. SAMSCA [Suspect]
     Dosage: 15 MG MILLIGRAM(S), UNKNOWN
     Route: 048
     Dates: start: 20120228, end: 20120326
  8. SAMSCA [Suspect]
     Dosage: 15 MG MILLIGRAM(S), UNKNOWN
     Route: 048
     Dates: start: 20120330, end: 20120408
  9. SAMSCA [Suspect]
     Dosage: 15 MG MILLIGRAM(S), DAILY DOSE
     Route: 048
     Dates: start: 20120412, end: 20120412
  10. SAMSCA [Suspect]
     Dosage: 15 MG MILLIGRAM(S), UNKNOWN
     Route: 048
     Dates: start: 20120414, end: 20120925
  11. SAMSCA [Suspect]
     Dosage: 15 MG MILLIGRAM(S), UNKNOWN
     Route: 048
     Dates: start: 20120926, end: 20121010
  12. SAMSCA [Suspect]
     Dosage: 15 MG MILLIGRAM(S), UNKNOWN
     Route: 048
     Dates: start: 20121011, end: 20130220
  13. SAMSCA [Suspect]
     Dosage: 15 MG MILLIGRAM(S), UNKNOWN
     Dates: start: 20130221, end: 20130613
  14. NACL [Concomitant]
     Indication: HYPONATRAEMIA
     Dosage: 4200 MG MILLIGRAM(S), DAILY DOSE
     Route: 048
     Dates: start: 20111220, end: 20120312
  15. SALINE [Concomitant]
     Dosage: 308 MMOL/L, UNKNOWN
     Route: 042
     Dates: start: 20111215, end: 20111221
  16. SALINE [Concomitant]
     Dosage: 15 MMOL/L, UNKNOWN
     Route: 042
     Dates: start: 20120104, end: 20120104
  17. SALINE [Concomitant]
     Dosage: 39 MMOL/L, UNKNOWN
     Route: 042
     Dates: start: 20120104, end: 20120105
  18. SALINE [Concomitant]
     Dosage: 170 MMOL/L, UNKNOWN
     Route: 042
     Dates: start: 20120109, end: 20120109
  19. SALINE [Concomitant]
     Dosage: 53 MMOL/L, UNKNOWN
     Route: 042
     Dates: start: 20120110, end: 20120111
  20. SALINE [Concomitant]
     Dosage: 15 MMOL/L, UNKNOWN
     Route: 042
     Dates: start: 20120118, end: 20120120
  21. SALINE [Concomitant]
     Dosage: 107 MMOL/L, UNKNOWN
     Route: 042
     Dates: start: 20120131, end: 20120131
  22. SALINE [Concomitant]
     Dosage: 53 MMOL/L, UNKNOWN
     Route: 042
     Dates: start: 20120201, end: 20120202
  23. SALINE [Concomitant]
     Dosage: 77 MMOL/L, UNKNOWN
     Route: 042
     Dates: start: 20120220, end: 20120220
  24. SALINE [Concomitant]
     Dosage: 77 MMOL/L, UNKNOWN
     Route: 042
     Dates: start: 20120222, end: 20120222
  25. SALINE [Concomitant]
     Dosage: 107 MMOL/L, UNKNOWN
     Route: 042
     Dates: start: 20120224, end: 20120224
  26. SALINE [Concomitant]
     Dosage: 53 MMOL/L, UNKNOWN
     Route: 042
     Dates: start: 20120225, end: 20120226
  27. SALINE [Concomitant]
     Dosage: 77 MMOL/L, UNKNOWN
     Route: 042
     Dates: start: 20120412, end: 20120417
  28. SALINE [Concomitant]
     Dosage: 145 MMOL/L, UNKNOWN
     Route: 042
     Dates: start: 20121228, end: 20121230
  29. SALINE [Concomitant]
     Dosage: 108 MMOL/L, UNKNOWN
     Route: 042
     Dates: start: 20130125, end: 20130125
  30. SALINE [Concomitant]
     Dosage: 54 MMOL/L, UNKNOWN
     Route: 042
     Dates: start: 20130126, end: 20130127
  31. SALINE [Concomitant]
     Dosage: 108 MMOL/L, UNKNOWN
     Route: 042
     Dates: start: 20130218, end: 20130218
  32. SALINE [Concomitant]
     Dosage: 54 MMOL/L, UNKNOWN
     Route: 042
     Dates: start: 20130219, end: 20130220
  33. SALINE [Concomitant]
     Dosage: 8 MMOL MILLIMOLE(S), DAILY DOSE
     Route: 042
     Dates: start: 20130402, end: 20130402
  34. SALINE [Concomitant]
     Dosage: 23 MMOL MILLIMOLE(S), DAILY DOSE
     Route: 042
     Dates: start: 20130403, end: 20130407
  35. SALINE [Concomitant]
     Dosage: 54 MMOL MILLIMOLE(S), DAILY DOSE
     Route: 042
     Dates: start: 20130510, end: 20130514
  36. SALINE [Concomitant]
     Dosage: 100 MMOL MILLIMOLE(S), DAILY DOSE
     Route: 042
     Dates: start: 20130515, end: 20130515
  37. SALINE [Concomitant]
     Dosage: 72 MMOL/L, UNKNOWN
     Route: 042
     Dates: start: 20120104, end: 20120108
  38. SALINE [Concomitant]
     Dosage: 217 MMOL/L, UNKNOWN
     Route: 042
     Dates: start: 20120109, end: 20120109
  39. SALINE [Concomitant]
     Dosage: 145 MMOL/L, UNKNOWN
     Route: 042
     Dates: start: 20120110, end: 20120112
  40. SALINE [Concomitant]
     Dosage: 217 MMOL/L, UNKNOWN
     Route: 042
     Dates: start: 20120131, end: 20120131
  41. SALINE [Concomitant]
     Dosage: 145 MMOL/L, UNKNOWN
     Route: 042
     Dates: start: 20120201, end: 20120203
  42. SALINE [Concomitant]
     Dosage: 72 MMOL/L, UNKNOWN
     Route: 042
     Dates: start: 20120223, end: 20120223
  43. SALINE [Concomitant]
     Dosage: 217 MMOL/L, UNKNOWN
     Route: 042
     Dates: start: 20120224, end: 20120224
  44. SALINE [Concomitant]
     Dosage: 145 MMOL/L, UNKNOWN
     Route: 042
     Dates: start: 20120225, end: 20120227
  45. SALINE [Concomitant]
     Dosage: 72 MMOL/L, UNKNOWN
     Route: 042
     Dates: start: 20120608, end: 20120608
  46. SALINE [Concomitant]
     Dosage: 217 MMOL/L, UNKNOWN
     Route: 042
     Dates: start: 20121228, end: 20121228
  47. SALINE [Concomitant]
     Dosage: 145 MMOL/L, UNKNOWN
     Route: 042
     Dates: start: 20121229, end: 20121231
  48. SALINE [Concomitant]
     Dosage: 217 MMOL/L, UNKNOWN
     Route: 042
     Dates: start: 20130125, end: 20130125
  49. SALINE [Concomitant]
     Dosage: 145 MMOL/L, UNKNOWN
     Route: 042
     Dates: start: 20130126, end: 20130128
  50. SALINE [Concomitant]
     Dosage: 217 MMOL/L, UNKNOWN
     Route: 042
     Dates: start: 20130218, end: 20130218
  51. SALINE [Concomitant]
     Dosage: 145 MMOL/L, UNKNOWN
     Route: 042
     Dates: start: 20130219, end: 20130220
  52. SALINE [Concomitant]
     Dosage: 72 MMOL/L, UNKNOWN
     Route: 042
     Dates: start: 20130221, end: 20130221
  53. SALINE [Concomitant]
     Dosage: 145 MMOL/L, UNKNOWN
     Route: 042
     Dates: start: 20130510, end: 20130515
  54. SALINE [Concomitant]
     Dosage: 73 MMOL/L, UNKNOWN
     Route: 042
     Dates: start: 20130614, end: 20130617
  55. SALINE [Concomitant]
     Dosage: 147 MMOL/L, UNKNOWN
     Route: 042
     Dates: start: 20130618, end: 20130619
  56. SALINE [Concomitant]
     Dosage: 17 MMOL/L, UNKNOWN
     Route: 042
     Dates: start: 20120220, end: 20120220
  57. SALINE [Concomitant]
     Dosage: 17 MMOL/L, UNKNOWN
     Route: 042
     Dates: start: 20120222, end: 20120222
  58. L-THYROXIN [Concomitant]
     Indication: HYPOTHYROIDISM
     Dosage: 25 MCG, DAILY DOSE
     Route: 048
  59. PANTOZOL [Concomitant]
     Indication: GASTROINTESTINAL DISORDER
     Dosage: 40 MG MILLIGRAM(S), DAILY DOSE
     Route: 048
     Dates: start: 20111221, end: 20120608
  60. PANTOZOL [Concomitant]
     Indication: GASTRITIS
     Dosage: 40 MG MILLIGRAM(S), DAILY DOSE
     Route: 048
     Dates: start: 20121227, end: 20130528
  61. PANTOZOL [Concomitant]
     Dosage: 20 MG MILLIGRAM(S), DAILY DOSE
     Route: 048
     Dates: end: 20130529
  62. ATACAND [Concomitant]
     Indication: HYPERTENSION
     Dosage: 8 MG MILLIGRAM(S), DAILY DOSE
     Route: 048
     Dates: end: 20120329
  63. ATACAND [Concomitant]
     Dosage: 4 MG MILLIGRAM(S), DAILY DOSE
     Route: 048
     Dates: start: 20120330, end: 20120502
  64. ATACAND [Concomitant]
     Dosage: 8 MG MILLIGRAM(S), DAILY DOSE
     Route: 048
     Dates: start: 20120503, end: 20120829
  65. FENOFIBRAT [Concomitant]
     Indication: HYPERLIPIDAEMIA
     Dosage: 200 MG MILLIGRAM(S), DAILY DOSE
     Route: 065
     Dates: end: 20120105
  66. FENOFIBRAT [Concomitant]
     Dosage: 200 MG MILLIGRAM(S), DAILY DOSE
     Route: 048
     Dates: start: 201203
  67. PASPERTIN [Concomitant]
     Indication: GASTROINTESTINAL DISORDER
     Dosage: 60 GTT DROP(S), DAILY DOSE
     Route: 048
     Dates: start: 20111216, end: 20120124
  68. PASPERTIN [Concomitant]
     Dosage: 90 GTT DROP(S), DAILY DOSE
     Route: 048
     Dates: start: 20120402, end: 20120425
  69. ZOFRAN [Concomitant]
     Indication: NAUSEA
     Dosage: 16 MG MILLIGRAM(S), DAILY DOSE
     Route: 048
     Dates: start: 20111219, end: 20120111
  70. ZOFRAN [Concomitant]
     Indication: VOMITING
     Dosage: 16 MG MILLIGRAM(S), DAILY DOSE
     Route: 048
     Dates: start: 20120118, end: 20120122
  71. VOMEX A [Concomitant]
     Indication: NAUSEA
     Dosage: 10 ML MILLILITRE(S), DAILY DOSE
     Route: 042
     Dates: start: 20111219, end: 20111221
  72. VOMEX A [Concomitant]
     Indication: VOMITING
     Dosage: 150 MG MILLIGRAM(S), DAILY DOSE
     Route: 048
     Dates: start: 20120109, end: 20120117
  73. VOMEX A [Concomitant]
     Dosage: 450 MG MILLIGRAM(S), PRN
     Route: 054
     Dates: start: 20120412, end: 20120412
  74. HALDOL [Concomitant]
     Indication: NAUSEA
     Dosage: 15 GTT DROP(S), PRN
     Route: 048
     Dates: start: 20111220, end: 20120117
  75. HALDOL [Concomitant]
     Indication: VOMITING
  76. FORTECORTIN [Concomitant]
     Indication: CHEMOTHERAPY
     Dosage: 4 MG MILLIGRAM(S), DAILY DOSE
     Route: 048
     Dates: start: 20111220, end: 20111223
  77. FORTECORTIN [Concomitant]
     Dosage: 8 MG MILLIGRAM(S), DAILY DOSE
     Route: 042
     Dates: start: 20120224, end: 20120224
  78. FORTECORTIN [Concomitant]
     Dosage: 8 MG MILLIGRAM(S), DAILY DOSE
     Route: 042
     Dates: start: 20120109, end: 20120109
  79. FORTECORTIN [Concomitant]
     Dosage: 8 MG MILLIGRAM(S), DAILY DOSE
     Route: 042
     Dates: start: 20121228, end: 20121228
  80. FORTECORTIN [Concomitant]
     Dosage: 8 MG MILLIGRAM(S), DAILY DOSE
     Route: 042
     Dates: start: 20130125, end: 20130125
  81. FORTECORTIN [Concomitant]
     Dosage: 8 MG MILLIGRAM(S), DAILY DOSE
     Route: 042
     Dates: start: 20130218, end: 20130218
  82. EMEND [Concomitant]
     Indication: PROPHYLAXIS OF NAUSEA AND VOMITING
     Dosage: 125 MG MILLIGRAM(S), DAILY DOSE
     Route: 048
     Dates: start: 20120131, end: 20120131
  83. EMEND [Concomitant]
     Dosage: 80 MG MILLIGRAM(S), DAILY DOSE
     Route: 048
     Dates: start: 20120201, end: 20120202
  84. CARBOPLATIN [Concomitant]
     Indication: SMALL CELL LUNG CANCER
     Dosage: 400 MG MILLIGRAM(S), DAILY DOSE
     Route: 042
     Dates: start: 20120109, end: 20120109
  85. CARBOPLATIN [Concomitant]
     Dosage: 350 MG MILLIGRAM(S), DAILY DOSE
     Route: 042
     Dates: start: 20120131, end: 20120131
  86. CARBOPLATIN [Concomitant]
     Dosage: 340 MG MILLIGRAM(S), DAILY DOSE
     Route: 042
     Dates: start: 20120224, end: 20120224
  87. CARBOPLATIN [Concomitant]
     Dosage: 430 MG MILLIGRAM(S), DAILY DOSE
     Route: 042
     Dates: start: 20121228, end: 20121228
  88. CARBOPLATIN [Concomitant]
     Dosage: 550 MG MILLIGRAM(S), DAILY DOSE
     Route: 042
     Dates: start: 20130125, end: 20130125
  89. CARBOPLATIN [Concomitant]
     Dosage: 470 MG MILLIGRAM(S), DAILY DOSE
     Route: 042
     Dates: start: 20130218, end: 20130218
  90. ETOPOSIDE [Concomitant]
     Indication: SMALL CELL LUNG CANCER
     Dosage: 150 MG MILLIGRAM(S), DAILY DOSE
     Route: 042
     Dates: start: 20120109, end: 20120111
  91. ETOPOSIDE [Concomitant]
     Indication: CHEMOTHERAPY
     Dosage: 150 MG MILLIGRAM(S), DAILY DOSE
     Route: 042
     Dates: start: 20120131, end: 20120202
  92. ETOPOSIDE [Concomitant]
     Dosage: 150 MG MILLIGRAM(S), DAILY DOSE
     Route: 042
     Dates: start: 20120224, end: 20120226
  93. ETOPOSIDE [Concomitant]
     Dosage: 150 MG MILLIGRAM(S), DAILY DOSE
     Route: 042
     Dates: start: 20121229, end: 20121230
  94. ETOPOSIDE [Concomitant]
     Dosage: 150 MG MILLIGRAM(S), DAILY DOSE
     Route: 042
     Dates: start: 20130125, end: 20130127
  95. ETOPOSIDE [Concomitant]
     Dosage: 160 MG MILLIGRAM(S), DAILY DOSE
     Route: 042
     Dates: start: 20130218, end: 20130220
  96. RANITIDINE [Concomitant]
     Indication: GASTRITIS PROPHYLAXIS
     Dosage: 10 MG MILLIGRAM(S), DAILY DOSE
     Route: 042
     Dates: start: 20120131, end: 20120131
  97. RANITIDINE [Concomitant]
     Indication: PROPHYLAXIS AGAINST GASTROINTESTINAL ULCER
     Dosage: 150 MG MILLIGRAM(S), DAILY DOSE
     Route: 042
     Dates: start: 20130515, end: 20130515
  98. TAVEGIL [Concomitant]
     Indication: ALLERGY PROPHYLAXIS
     Dosage: 5 ML MILLILITRE(S), DAILY DOSE
     Route: 042
     Dates: start: 20120131, end: 20120131
  99. TAVEGIL [Concomitant]
     Dosage: 1 DF DOSAGE FORM, DAILY DOSE
     Route: 048
     Dates: start: 20120321, end: 20120403
  100. BEZAFIBRAT [Concomitant]
     Indication: HYPERLIPIDAEMIA
     Dosage: 400 MG MILLIGRAM(S), DAILY DOSE
     Route: 048
     Dates: start: 20120315, end: 20120502
  101. BEZAFIBRAT [Concomitant]
     Dosage: 400 MG MILLIGRAM(S), DAILY DOSE
     Route: 048
     Dates: start: 20121227
  102. VOMEX A [Concomitant]
     Indication: NAUSEA
     Dosage: 10 ML MILLILITRE(S), DAILY DOSE
     Route: 042
     Dates: start: 20120104, end: 20120105
  103. VOMEX A [Concomitant]
     Indication: VOMITING
     Dosage: 10 ML MILLILITRE(S), DAILY DOSE
     Route: 042
     Dates: start: 20120106, end: 20120106
  104. VOMEX A [Concomitant]
     Indication: PROPHYLAXIS OF NAUSEA AND VOMITING
     Dosage: 20 ML MILLILITRE(S), DAILY DOSE
     Route: 042
     Dates: start: 20120107, end: 20120108
  105. VOMEX A [Concomitant]
     Dosage: 20 ML MILLILITRE(S), DAILY DOSE
     Route: 042
     Dates: start: 20120108, end: 20120108
  106. ZOFRAN [Concomitant]
     Indication: NAUSEA
     Dosage: 15 MG MILLIGRAM(S), DAILY DOSE
     Route: 048
     Dates: start: 20120104, end: 20120109
  107. ZOFRAN [Concomitant]
     Indication: VOMITING
  108. ZOFRAN [Concomitant]
     Indication: PROPHYLAXIS OF NAUSEA AND VOMITING
  109. ZOFRAN [Concomitant]
     Indication: GASTROINTESTINAL DISORDER
     Dosage: 8 MG MILLIGRAM(S), PRN
     Route: 048
     Dates: start: 20120125, end: 20120129
  110. ZOFRAN [Concomitant]
     Dosage: 16 MG MILLIGRAM(S), DAILY DOSE
     Route: 048
     Dates: start: 20120220, end: 20120220
  111. FORTECORTIN [Concomitant]
     Indication: NAUSEA
     Dosage: 16 MG MILLIGRAM(S), DAILY DOSE
     Route: 048
     Dates: start: 20120105, end: 20120107
  112. FORTECORTIN [Concomitant]
     Indication: VOMITING
     Dosage: 4 MG MILLIGRAM(S), DAILY DOSE
     Route: 048
     Dates: start: 20120112, end: 20120112
  113. EMEND [Concomitant]
     Indication: NAUSEA
     Dosage: 80 MG MILLIGRAM(S), DAILY DOSE
     Route: 048
     Dates: start: 20120109, end: 20120111
  114. EMEND [Concomitant]
     Indication: VOMITING
  115. FRAXIPARIN [Concomitant]
     Indication: ANTICOAGULANT THERAPY
     Dosage: 3 ML MILLILITRE(S), DAILY DOSE
     Route: 042
     Dates: start: 20120104, end: 20120117
  116. FRAXIPARIN [Concomitant]
     Dosage: 0.3 ML MILLILITRE(S), DAILY DOSE
     Route: 042
     Dates: start: 20120221, end: 20120227
  117. RIOPAN [Concomitant]
     Indication: DYSPEPSIA
     Dosage: 10 ML MILLILITRE(S), PRN
     Route: 048
     Dates: start: 20120107, end: 20120107
  118. RIOPAN [Concomitant]
     Indication: ABDOMINAL DISCOMFORT
  119. RIOPAN [Concomitant]
     Indication: NAUSEA
  120. RIOPAN [Concomitant]
     Indication: VOMITING
  121. BUSCOPAN [Concomitant]
     Indication: ABDOMINAL PAIN
     Dosage: 1 DF DOSAGE FORM, PRN
     Route: 048
     Dates: start: 20120113, end: 20120117
  122. MCP [Concomitant]
     Indication: GASTROINTESTINAL DISORDER
     Dosage: 20 GTT DROP(S), PRN
     Route: 048
     Dates: start: 20120125, end: 20120129
  123. MOVICOL [Concomitant]
     Indication: CONSTIPATION
     Dosage: 13.3 G GRAM(S), PRN
     Route: 048
     Dates: start: 20120125, end: 20120129
  124. BELOC ZOK [Concomitant]
     Indication: HYPERTENSION
     Dosage: 23.75 MG MILLIGRAM(S), DAILY DOSE
     Route: 048
     Dates: start: 20120314, end: 20121226
  125. NOVALGIN [Concomitant]
     Indication: PAIN
     Dosage: 1500 MG MILLIGRAM(S), DAILY DOSE
     Route: 048
     Dates: start: 20120402, end: 20120411
  126. PANTOZOL [Concomitant]
     Indication: PROPHYLAXIS OF NAUSEA AND VOMITING
     Dosage: 40 MG MILLIGRAM(S), DAILY DOSE
     Route: 042
     Dates: start: 20120104, end: 20120104
  127. RIOPAN [Concomitant]
     Indication: DYSPEPSIA
     Dosage: 160 MG MILLIGRAM(S), DAILY DOSE
     Route: 048
     Dates: start: 20120107, end: 20120107
  128. RIOPAN [Concomitant]
     Indication: ABDOMINAL PAIN UPPER
     Dosage: 160 MG MILLIGRAM(S), PRN
     Route: 048
     Dates: start: 20120113, end: 20120227
  129. RIOPAN [Concomitant]
     Dosage: 160 MG MILLIGRAM(S), DAILY DOSE
     Route: 048
     Dates: start: 20120327, end: 20120327
  130. GRANISETRON [Concomitant]
     Indication: CHEMOTHERAPY
     Dosage: 3 MG MILLIGRAM(S), DAILY DOSE
     Route: 042
     Dates: start: 20120109, end: 20120111
  131. GRANISETRON [Concomitant]
     Indication: SMALL CELL LUNG CANCER
     Dosage: 3 MG MILLIGRAM(S), DAILY DOSE
     Route: 048
     Dates: start: 20120224, end: 20120226
  132. GRANISETRON [Concomitant]
     Dosage: 3 MG MILLIGRAM(S), DAILY DOSE
     Route: 048
     Dates: start: 20121228, end: 20121230
  133. GRANISETRON [Concomitant]
     Dosage: 3 MG MILLIGRAM(S), DAILY DOSE
     Route: 042
     Dates: start: 20130125, end: 20130127
  134. GRANISETRON [Concomitant]
     Dosage: 3 MG MILLIGRAM(S), DAILY DOSE
     Route: 042
     Dates: start: 20130218, end: 20130220
  135. GRANISETRON [Concomitant]
     Dosage: 3 MG MILLIGRAM(S), DAILY DOSE
     Route: 042
     Dates: start: 20130510, end: 20130510
  136. PREDNISOLON [Concomitant]
     Indication: ALLERGY PROPHYLAXIS
     Dosage: 250 MG MILLIGRAM(S), DAILY DOSE
     Route: 042
     Dates: start: 20120224, end: 20120226
  137. RANITIDINE [Concomitant]
     Indication: ALLERGY PROPHYLAXIS
     Dosage: 5 ML MILLILITRE(S), DAILY DOSE
     Route: 042
     Dates: start: 20120224, end: 20120226
  138. TAVEGIL [Concomitant]
     Indication: ALLERGY PROPHYLAXIS
     Dosage: 5 ML MILLILITRE(S), DAILY DOSE
     Route: 042
     Dates: start: 20120224, end: 20120226
  139. TAVEGIL [Concomitant]
     Dosage: 5 ML MILLILITRE(S), DAILY DOSE
     Route: 042
     Dates: start: 20120112, end: 20120112
  140. TAVEGIL [Concomitant]
     Dosage: 5 ML MILLILITRE(S), DAILY DOSE
     Route: 042
     Dates: start: 20130515, end: 20130515
  141. EMEND [Concomitant]
     Indication: NAUSEA
     Dosage: 125 MG MILLIGRAM(S), DAILY DOSE
     Route: 048
     Dates: start: 20120224, end: 20120224
  142. EMEND [Concomitant]
     Indication: VOMITING
     Dosage: 80 MG MILLIGRAM(S), DAILY DOSE
     Route: 048
     Dates: start: 20120225, end: 20120226
  143. EMEND [Concomitant]
     Indication: CHEMOTHERAPY
  144. ZANTIC [Concomitant]
     Indication: GASTROINTESTINAL DISORDER
     Dosage: 5 ML MILLILITRE(S), DAILY DOSE
     Route: 042
     Dates: start: 20120112, end: 20120112
  145. VERGENTAN [Concomitant]
     Indication: NAUSEA
     Dosage: 250 DF DOSAGE FORM, DAILY DOSE
     Route: 042
     Dates: start: 20120112, end: 20120112
  146. VERGENTAN [Concomitant]
     Indication: VOMITING
     Dosage: 250 MG MILLIGRAM(S), DAILY DOSE
     Route: 042
     Dates: start: 20120203, end: 20120203
  147. VERGENTAN [Concomitant]
     Indication: CHEMOTHERAPY
     Dosage: 250 MG MILLIGRAM(S), DAILY DOSE
     Route: 042
     Dates: start: 20121228, end: 20121231
  148. VERGENTAN [Concomitant]
     Dosage: 250 DF DOSAGE FORM, DAILY DOSE
     Route: 042
     Dates: start: 20120414, end: 20120414
  149. SIMVASTATIN [Concomitant]
     Indication: HYPERCHOLESTEROLAEMIA
     Dosage: 20 MG MILLIGRAM(S), DAILY DOSE
     Route: 048
     Dates: start: 20120503
  150. BISOPROLOL FUMERATE [Concomitant]
     Indication: HYPERTENSION
     Dosage: 2.5 MG MILLIGRAM(S), DAILY DOSE
     Route: 048
     Dates: start: 20121227, end: 20121228
  151. BISOPROLOL FUMERATE [Concomitant]
     Dosage: 7.5 MG MILLIGRAM(S), DAILY DOSE
     Route: 048
     Dates: start: 20121229, end: 20130112
  152. BISOPROLOL FUMERATE [Concomitant]
     Dosage: 10 MG MILLIGRAM(S), DAILY DOSE
     Route: 048
     Dates: start: 20130113, end: 20130117
  153. BISOPROLOL FUMERATE [Concomitant]
     Dosage: 5 MG MILLIGRAM(S), DAILY DOSE
     Route: 048
     Dates: start: 20130118, end: 20130401
  154. NEBIVOLOL [Concomitant]
     Indication: HYPERTENSION
     Dosage: 5 MG MILLIGRAM(S), DAILY DOSE
     Route: 048
     Dates: start: 20130111, end: 20130112
  155. METOPROLOL [Concomitant]
     Indication: HYPERTENSION
     Dosage: 47.5 MG MILLIGRAM(S), DAILY DOSE
     Route: 048
     Dates: start: 20130111, end: 20130113
  156. METOPROLOL [Concomitant]
     Dosage: 47.5 MG MILLIGRAM(S), DAILY DOSE
     Route: 048
     Dates: start: 20130125, end: 20130225
  157. METOPROLOL [Concomitant]
     Dosage: 47.5 MG MILLIGRAM(S), DAILY DOSE
     Route: 048
     Dates: start: 20130306, end: 201303
  158. EMEND [Concomitant]
     Indication: CHEMOTHERAPY
     Dosage: 125 MG MILLIGRAM(S), DAILY DOSE
     Route: 048
     Dates: start: 20130125, end: 20130125
  159. EMEND [Concomitant]
     Dosage: 80 MG MILLIGRAM(S), DAILY DOSE
     Route: 048
     Dates: start: 20130126, end: 20130127
  160. APREPITANT [Concomitant]
     Indication: CHEMOTHERAPY
     Dosage: 125 MG MILLIGRAM(S), DAILY DOSE
     Route: 048
     Dates: start: 20130125, end: 20130125
  161. APREPITANT [Concomitant]
     Dosage: 80 MG MILLIGRAM(S), DAILY DOSE
     Route: 048
     Dates: start: 20130126, end: 20130127
  162. APREPITANT [Concomitant]
     Dosage: 125 MG MILLIGRAM(S), DAILY DOSE
     Route: 048
     Dates: start: 20130218, end: 20130218
  163. APREPITANT [Concomitant]
     Dosage: 80 MG MILLIGRAM(S), DAILY DOSE
     Route: 048
     Dates: start: 20130219, end: 20130220
  164. IBUPROFEN [Concomitant]
     Indication: TUMOUR PAIN
     Dosage: 600 MG MILLIGRAM(S), PRN
     Route: 048
     Dates: start: 20130218, end: 20130218
  165. TOREM [Concomitant]
     Indication: POLYURIA
     Dosage: 10 MG MILLIGRAM(S), UNKNOWN
     Route: 048
     Dates: start: 20130219, end: 20130219
  166. TOREM [Concomitant]
     Indication: HYPERTENSION
     Dosage: 5 MG MILLIGRAM(S), DAILY DOSE
     Route: 048
     Dates: start: 20130218, end: 20130515
  167. TOREM [Concomitant]
     Indication: PLEURAL EFFUSION
     Dosage: 20 MG MILLIGRAM(S), DAILY DOSE
     Route: 048
     Dates: start: 20130515, end: 20130517
  168. TOREM [Concomitant]
     Indication: OEDEMA
     Dosage: 10 MG MILLIGRAM(S), DAILY DOSE
     Route: 048
     Dates: start: 20130520, end: 20130520
  169. TOREM [Concomitant]
     Dosage: 20 MG MILLIGRAM(S), DAILY DOSE
     Route: 048
     Dates: start: 20130521, end: 20130522
  170. TOREM [Concomitant]
     Dosage: 10 MG MILLIGRAM(S), DAILY DOSE
     Route: 048
     Dates: start: 20130523, end: 20130613
  171. TOREM [Concomitant]
     Dosage: 5 MG MILLIGRAM(S), DAILY DOSE
     Route: 048
     Dates: start: 20130614
  172. VERGENTAN [Concomitant]
     Indication: CHEMOTHERAPY
     Dosage: 250 MG MILLIGRAM(S), DAILY DOSE
     Route: 042
     Dates: start: 20130125, end: 20130128
  173. VERGENTAN [Concomitant]
     Dosage: 250 MG MILLIGRAM(S), DAILY DOSE
     Route: 042
     Dates: start: 20130218, end: 20130221
  174. NEULASTA [Concomitant]
     Indication: CHEMOTHERAPY
     Dosage: 6 MG MILLIGRAM(S), DAILY DOSE
     Route: 058
     Dates: start: 20130221, end: 20130221
  175. NEULASTA [Concomitant]
     Dosage: 6 MG MILLIGRAM(S), DAILY DOSE
     Route: 058
     Dates: start: 20130128, end: 20130128
  176. KALINOR [Concomitant]
     Indication: MINERAL SUPPLEMENTATION
     Dosage: 1 DF DOSAGE FORM, DAILY DOSE
     Route: 048
     Dates: start: 20130304, end: 20130305
  177. AMPHO MORONAL [Concomitant]
     Indication: PROPHYLAXIS
     Dosage: 4 DF DOSAGE FORM, DAILY DOSE
     Route: 048
     Dates: start: 20130226, end: 20130306
  178. BEPANTHEN [Concomitant]
     Indication: PROPHYLAXIS
     Dosage: UNK
     Route: 048
     Dates: start: 20130226, end: 20130305
  179. CONCOR [Concomitant]
     Indication: HYPERTENSION
     Dosage: 10 MG MILLIGRAM(S), DAILY DOSE
     Route: 048
     Dates: start: 20130402, end: 20130513
  180. CONCOR [Concomitant]
     Dosage: 2.5 MG MILLIGRAM(S), DAILY DOSE
     Route: 048
     Dates: start: 20130514, end: 20130524
  181. AMPHO MORONAL [Concomitant]
     Indication: PROPHYLAXIS
     Dosage: 3 DF DOSAGE FORM, DAILY DOSE
     Route: 048
     Dates: start: 20130402, end: 201306
  182. FRAXIPARIN [Concomitant]
     Indication: PULMONARY CONGESTION
     Dosage: 1.2 ML MILLILITRE(S), DAILY DOSE
     Route: 058
     Dates: start: 20130402, end: 20130428
  183. L THYROXIN [Concomitant]
     Indication: HYPOTHYROIDISM
     Dosage: 25 MCG, DAILY DOSE
     Route: 048
     Dates: start: 20130406, end: 20130406
  184. L THYROXIN [Concomitant]
     Dosage: 25 MCG, DAILY DOSE
     Route: 048
     Dates: start: 201304
  185. TOPOTECAN [Concomitant]
     Indication: SMALL CELL LUNG CANCER
     Dosage: 1.6 MG MILLIGRAM(S), DAILY DOSE
     Route: 042
     Dates: start: 20130510, end: 20130515
  186. GRANISETRON [Concomitant]
     Indication: CHEMOTHERAPY
  187. LEVEMIR [Concomitant]
     Indication: BLOOD GLUCOSE INCREASED
     Dosage: 12 IU, DAILY DOSE
     Route: 058
     Dates: start: 20130503, end: 20130503
  188. LEVEMIR [Concomitant]
     Indication: DIABETES MELLITUS
     Dosage: 8 IU, DAILY DOSE
     Route: 058
     Dates: start: 20130501, end: 20130502
  189. FRAXIPARIN [Concomitant]
     Indication: IMMOBILE
     Dosage: 0.6 ML MILLILITRE(S), DAILY DOSE
     Route: 058
     Dates: start: 20130430, end: 20130430
  190. FRAXIPARIN [Concomitant]
     Indication: THROMBOSIS PROPHYLAXIS
     Dosage: 1.2 ML MILLILITRE(S), DAILY DOSE
     Route: 058
     Dates: start: 20130501, end: 20130507
  191. FRAXIPARIN [Concomitant]
     Indication: SUPERIOR VENA CAVA OCCLUSION
     Dosage: 0.3 ML MILLILITRE(S), DAILY DOSE
     Route: 058
     Dates: start: 20130508, end: 20130509
  192. FRAXIPARIN [Concomitant]
     Dosage: 0.6 ML MILLILITRE(S), DAILY DOSE
     Route: 058
     Dates: start: 20130510, end: 20130510
  193. FRAXIPARIN [Concomitant]
     Dosage: 1.2 ML MILLILITRE(S), DAILY DOSE
     Route: 058
     Dates: start: 20130511, end: 20130516
  194. FRAXIPARIN [Concomitant]
     Dosage: 0.6 ML MILLILITRE(S), DAILY DOSE
     Route: 058
     Dates: start: 20130517, end: 20130517
  195. FRAXIPARIN [Concomitant]
     Dosage: 0.3 ML MILLILITRE(S), DAILY DOSE
     Route: 058
     Dates: start: 20130614, end: 20130618
  196. PANTOPRAZOL [Concomitant]
     Indication: PROPHYLAXIS
     Dosage: 20 MG MILLIGRAM(S), DAILY DOSE
     Route: 048
     Dates: start: 20130529
  197. INSULIN BASAL [Concomitant]
     Indication: BLOOD GLUCOSE INCREASED
     Dosage: 8 IU, DAILY DOSE
     Route: 058
     Dates: start: 20130614
  198. SALINE [Concomitant]
     Dosage: 73 MMOL MILLIMOLE(S), DAILY DOSE
     Route: 042
     Dates: start: 20130614, end: 20130617
  199. SALINE [Concomitant]
     Dosage: 147 MMOL MILLIMOLE(S), DAILY DOSE
     Route: 065
     Dates: start: 20130618, end: 20130619
  200. SALINE [Concomitant]
     Dosage: 147 MMOL MILLIMOLE(S), DAILY DOSE
     Route: 042
     Dates: start: 20130618, end: 20130619

REACTIONS (57)
  - Rapid correction of hyponatraemia [Recovered/Resolved]
  - Rapid correction of hyponatraemia [Recovered/Resolved]
  - Rapid correction of hyponatraemia [Recovered/Resolved]
  - Rapid correction of hyponatraemia [Recovered/Resolved]
  - Lung neoplasm malignant [Recovering/Resolving]
  - Pancytopenia [Recovering/Resolving]
  - Vomiting [Recovered/Resolved]
  - General physical health deterioration [Recovered/Resolved]
  - Nausea [Recovered/Resolved]
  - Vomiting [Recovered/Resolved]
  - Nausea [Recovered/Resolved]
  - Nausea [Recovered/Resolved]
  - Vomiting [Recovered/Resolved]
  - General physical health deterioration [Recovered/Resolved]
  - Pneumonia [Recovered/Resolved]
  - C-reactive protein increased [Recovered/Resolved]
  - Radiation fibrosis - lung [Recovering/Resolving]
  - Radiation pneumonitis [Recovering/Resolving]
  - General physical health deterioration [Recovering/Resolving]
  - Pneumonitis [Recovered/Resolved]
  - Pyrexia [Recovered/Resolved]
  - Convulsion [Recovering/Resolving]
  - Pain in extremity [Recovering/Resolving]
  - Leukopenia [Recovering/Resolving]
  - Dyspepsia [Unknown]
  - Pneumonitis [Unknown]
  - General physical health deterioration [Recovered/Resolved]
  - Dyspnoea [Recovered/Resolved]
  - Blood glucose increased [Recovering/Resolving]
  - Superior vena cava stenosis [Recovering/Resolving]
  - Pulmonary artery stenosis [Recovering/Resolving]
  - Dyspnoea [Recovering/Resolving]
  - Oropharyngeal candidiasis [Recovered/Resolved]
  - Pancytopenia [Recovering/Resolving]
  - Atypical pneumonia [Recovering/Resolving]
  - Pleural effusion [Recovering/Resolving]
  - Oedema [Recovering/Resolving]
  - Blood potassium decreased [Recovered/Resolved]
  - Haemoglobin decreased [Recovered/Resolved]
  - Blood uric acid increased [Recovering/Resolving]
  - Urinary tract infection [Recovering/Resolving]
  - Blood potassium decreased [Recovered/Resolved]
  - Blood calcium decreased [Recovering/Resolving]
  - Herpes virus infection [Recovered/Resolved]
  - Vomiting [Recovered/Resolved]
  - Pruritus [Recovered/Resolved]
  - Thirst [Unknown]
  - Nausea [Recovered/Resolved]
  - Superior vena cava syndrome [Not Recovered/Not Resolved]
  - Candida infection [Recovered/Resolved]
  - Cough [Recovering/Resolving]
  - Fall [Recovered/Resolved]
  - Loss of control of legs [Recovered/Resolved]
  - C-reactive protein increased [Recovered/Resolved]
  - Lung infiltration [Recovered/Resolved with Sequelae]
  - Gastrointestinal disorder [Recovering/Resolving]
  - Incorrect drug administration rate [Unknown]
